FAERS Safety Report 7220128-0 (Version None)
Quarter: 2011Q1

REPORT INFORMATION
  Report Type: 
  Country: None (occurrence: None)
  Receive Date: 20110111
  Receipt Date: 20110110
  Transmission Date: 20110831
  Serious: Yes (Other)
  Sender: FDA-Public Use
  Company Number: GXKR2010DE13836

PATIENT
  Sex: Female
  Weight: 72.5 kg

DRUGS (4)
  1. SULFASALAZINE [Interacting]
     Dosage: 500MG-0-1000MG
     Route: 048
  2. SULFASALAZINE [Interacting]
     Dosage: 1000 MG, BID
  3. SULFASALAZINE [Interacting]
     Indication: PSORIATIC ARTHROPATHY
     Dosage: 500 MG, TID
     Route: 048
     Dates: start: 20101002, end: 20101030
  4. SIMVASTATIN [Suspect]
     Indication: HYPERCHOLESTEROLAEMIA
     Route: 048

REACTIONS (6)
  - HYPOGLYCAEMIA [None]
  - BLOOD GLUCOSE DECREASED [None]
  - NAUSEA [None]
  - HEPATIC ENZYME INCREASED [None]
  - DRUG INTERACTION [None]
  - HEADACHE [None]
